FAERS Safety Report 19529800 (Version 1)
Quarter: 2021Q3

REPORT INFORMATION
  Report Type: Spontaneous
  Country: IT (occurrence: IT)
  Receive Date: 20210713
  Receipt Date: 20210713
  Transmission Date: 20211014
  Serious: Yes (Hospitalization)
  Sender: FDA-Public Use
  Company Number: IT-AUROBINDO-AUR-APL-2021-029038

PATIENT
  Age: 22 Year
  Sex: Female

DRUGS (3)
  1. PARACETAMOL [Suspect]
     Active Substance: ACETAMINOPHEN
     Indication: PRODUCT USED FOR UNKNOWN INDICATION
     Dosage: 1 DOSAGE FORM AS NECESSARY
     Route: 048
  2. COMIRNATY [Suspect]
     Active Substance: TOZINAMERAN
     Indication: PRODUCT USED FOR UNKNOWN INDICATION
     Dosage: 1 DOSAGE FORM IN TOTAL
     Route: 030
     Dates: start: 20210609, end: 20210609
  3. IBUPROFEN. [Suspect]
     Active Substance: IBUPROFEN
     Indication: PRODUCT USED FOR UNKNOWN INDICATION
     Dosage: 1 DOSAGE FORM AS NECESSARY
     Route: 048

REACTIONS (2)
  - Hypersensitivity [Recovering/Resolving]
  - Periorbital oedema [Recovering/Resolving]

NARRATIVE: CASE EVENT DATE: 20210610
